FAERS Safety Report 24892687 (Version 1)
Quarter: 2025Q1

REPORT INFORMATION
  Report Type: Spontaneous
  Country: FR (occurrence: FR)
  Receive Date: 20250128
  Receipt Date: 20250128
  Transmission Date: 20250408
  Serious: Yes (Congenital Anomaly, Other)
  Sender: GLAXOSMITHKLINE
  Company Number: None

PATIENT

DRUGS (3)
  1. LAMICTAL [Suspect]
     Active Substance: LAMOTRIGINE
     Indication: Maternal exposure timing unspecified
     Dosage: 100 MG, QD (0 TO 38 WEEKS)
     Route: 064
     Dates: start: 2022, end: 20220830
  2. ZOLOFT [Suspect]
     Active Substance: SERTRALINE HYDROCHLORIDE
     Indication: Maternal exposure timing unspecified
     Dosage: 100 MG, QD (0 TO 38 WEEKS)
     Route: 064
     Dates: start: 2022, end: 20220830
  3. FOLIC ACID [Suspect]
     Active Substance: FOLIC ACID
     Indication: Maternal exposure timing unspecified
     Dosage: 0.4 MG, QD (0 TO 38 WEEKS)
     Route: 064
     Dates: start: 2022, end: 20220830

REACTIONS (2)
  - Intracranial lipoma [Not Recovered/Not Resolved]
  - Foetal exposure during pregnancy [Unknown]
